FAERS Safety Report 9413051 (Version 1)
Quarter: 2013Q3

REPORT INFORMATION
  Report Type: Spontaneous
  Country: BE (occurrence: BE)
  Receive Date: 20130722
  Receipt Date: 20130722
  Transmission Date: 20140515
  Serious: Yes (Other)
  Sender: FDA-Public Use
  Company Number: BE-GLAXOSMITHKLINE-B0905508A

PATIENT
  Age: 68 Year
  Sex: Female
  Weight: 64.5 kg

DRUGS (8)
  1. LAMBIPOL [Suspect]
     Indication: BIPOLAR I DISORDER
     Dosage: 200MG PER DAY
     Route: 065
     Dates: start: 20130624, end: 20130630
  2. ANTABUSE [Concomitant]
     Indication: PRODUCT USED FOR UNKNOWN INDICATION
     Route: 065
  3. MANIPREX [Concomitant]
     Dosage: 500MG PER DAY
     Route: 065
     Dates: start: 20130705
  4. LORAZEPAM [Concomitant]
     Dosage: 1MG PER DAY
     Route: 065
  5. MIRTAZAPINE [Concomitant]
     Dosage: 30MG PER DAY
     Route: 065
  6. PANTOPRAZOLE [Concomitant]
     Dosage: 20MG PER DAY
     Route: 065
  7. ZOCOR [Concomitant]
     Route: 065
  8. XANAX RETARD [Concomitant]
     Dosage: 2MG PER DAY
     Route: 065
     Dates: start: 20130508

REACTIONS (8)
  - Nausea [Recovered/Resolved]
  - Malaise [Recovered/Resolved]
  - Accidental overdose [Unknown]
  - Decreased appetite [Recovered/Resolved]
  - Abdominal pain [Recovered/Resolved]
  - Vomiting [Recovered/Resolved]
  - Gastric disorder [Recovered/Resolved]
  - Gastrointestinal pain [Recovered/Resolved]
